FAERS Safety Report 4415161-8 (Version None)
Quarter: 2004Q3

REPORT INFORMATION
  Report Type: 
  Country: None (occurrence: None)
  Receive Date: 20040730
  Receipt Date: 20040719
  Transmission Date: 20050211
  Serious: No
  Sender: FDA-Public Use
  Company Number: 04P-056-0267486-00

PATIENT
  Age: 69 Year
  Sex: Male
  Weight: 102 kg

DRUGS (8)
  1. TRICOR [Suspect]
     Indication: HYPERCHOLESTEROLAEMIA
     Dosage: 200 MG, 1 IN 1 D, ORAL
     Route: 048
     Dates: start: 19900101, end: 20020617
  2. RILMENIDINE [Concomitant]
  3. FUROSEMIDE [Concomitant]
  4. VALSARTAN [Concomitant]
  5. CLOPIDOGREL BISULFATE [Concomitant]
  6. CALCIUM CARBONATE [Concomitant]
  7. ESOMEPRAZOLE [Concomitant]
  8. SODIUM POLYSTYRENE SULFONATE [Concomitant]

REACTIONS (2)
  - CONDITION AGGRAVATED [None]
  - RENAL IMPAIRMENT [None]
